FAERS Safety Report 16883280 (Version 2)
Quarter: 2019Q4

REPORT INFORMATION
  Report Type: Spontaneous
  Country: US (occurrence: US)
  Receive Date: 20191004
  Receipt Date: 20191127
  Transmission Date: 20200122
  Serious: No
  Sender: FDA-Public Use
  Company Number: US-ASTRAZENECA-2019SF28220

PATIENT
  Age: 16808 Day
  Sex: Male
  Weight: 136.5 kg

DRUGS (3)
  1. PEPCID [Concomitant]
     Active Substance: FAMOTIDINE
  2. BENADRYL [Concomitant]
     Active Substance: DIPHENHYDRAMINE HYDROCHLORIDE
  3. BYDUREON BCISE [Suspect]
     Active Substance: EXENATIDE
     Indication: TYPE 2 DIABETES MELLITUS
     Route: 058
     Dates: start: 20190801, end: 20190821

REACTIONS (4)
  - Musculoskeletal chest pain [Unknown]
  - Pruritus [Recovered/Resolved]
  - Drug eruption [Recovered/Resolved]
  - Urticaria [Recovered/Resolved]

NARRATIVE: CASE EVENT DATE: 20190817
